FAERS Safety Report 7577406-5 (Version None)
Quarter: 2011Q2

REPORT INFORMATION
  Report Type: 
  Country: None (occurrence: None)
  Receive Date: 20110628
  Receipt Date: 20091114
  Transmission Date: 20111010
  Serious: Yes (Death, Hospitalization, Other)
  Sender: FDA-Public Use
  Company Number: US-BAYER-200939552NA

PATIENT
  Age: 72 Year
  Sex: Female
  Weight: 49 kg

DRUGS (22)
  1. VECURONIUM BROMIDE [Concomitant]
     Dosage: UNK
     Route: 042
     Dates: start: 20030310, end: 20030310
  2. HEPARIN [Concomitant]
     Dosage: 5000 U, UNK
     Route: 042
     Dates: start: 20030310, end: 20030310
  3. VERSED [Concomitant]
     Dosage: 2 MG, UNK
     Route: 042
     Dates: start: 20030310, end: 20030310
  4. LEVOPHED [Concomitant]
     Dosage: 0.15 MCG/KG/MIN
     Route: 042
     Dates: start: 20030310, end: 20030310
  5. LIDOCAINE [Concomitant]
     Dosage: UNK
     Route: 042
     Dates: start: 20030310, end: 20030310
  6. MILRINONE [Concomitant]
     Dosage: 0.5 MCG/KG/MIN
     Route: 042
     Dates: start: 20030310, end: 20030311
  7. IMDUR [Concomitant]
     Dosage: 30 MG, QD
     Route: 048
  8. NORVASC [Concomitant]
     Dosage: 5 MG, QD
     Route: 048
     Dates: start: 20001101
  9. PROPOFOL [Concomitant]
     Dosage: UNK
     Route: 042
     Dates: start: 20030310, end: 20030310
  10. AMIODARONE HCL [Concomitant]
     Dosage: 200 MG, QD
     Route: 048
  11. ISOFURANE [Concomitant]
     Dosage: UNK
     Route: 042
     Dates: start: 20030310, end: 20030310
  12. ZEMURON [Concomitant]
     Dosage: UNK
     Route: 042
     Dates: start: 20030310, end: 20030310
  13. TRASYLOL [Suspect]
     Indication: CORONARY ARTERY BYPASS
     Dosage: 25 CC/HR INFUSION
     Route: 042
     Dates: start: 20030310, end: 20030310
  14. ACETYLSALICYLIC ACID SRT [Concomitant]
     Dosage: 325 MG, QD
     Route: 048
  15. LIPITOR [Concomitant]
     Route: 048
  16. ESTRATAB [Concomitant]
     Dosage: 0.625 MG, QD
  17. PHENYLEPHRINE HCL [Concomitant]
     Dosage: 0.5 MCG/KG/MIN
     Route: 042
     Dates: start: 20030310, end: 20030310
  18. VANCOMYCIN [Concomitant]
     Dosage: 1 G, UNK
     Route: 042
     Dates: start: 20030310
  19. FOSAMAX [Concomitant]
     Dosage: 10 MG WEEKLY
     Route: 048
     Dates: start: 19990101
  20. RELAFEN [Concomitant]
     Dosage: 1500 MG, QD
     Route: 048
  21. FENTANYL [Concomitant]
     Dosage: UNK
     Route: 042
     Dates: start: 20030310, end: 20030310
  22. FLEXERIL [Concomitant]
     Dosage: 10 MG, PRN
     Route: 048

REACTIONS (6)
  - UNEVALUABLE EVENT [None]
  - INJURY [None]
  - RENAL FAILURE [None]
  - DEATH [None]
  - RENAL FAILURE ACUTE [None]
  - PAIN [None]
